FAERS Safety Report 8998665 (Version 2)
Quarter: 2013Q1

REPORT INFORMATION
  Report Type: Spontaneous
  Country: US (occurrence: US)
  Receive Date: 20130103
  Receipt Date: 20130125
  Transmission Date: 20140127
  Serious: No
  Sender: FDA-Public Use
  Company Number: US-009507513-1212USA011072

PATIENT
  Sex: Female

DRUGS (3)
  1. PROVENTIL [Suspect]
     Indication: PNEUMONIA
     Dosage: 2 DF, QID
     Route: 055
     Dates: start: 20121220
  2. AVELOX [Concomitant]
  3. CODEINE [Concomitant]
     Indication: COUGH

REACTIONS (2)
  - Drug ineffective [Not Recovered/Not Resolved]
  - Product packaging issue [Unknown]
